FAERS Safety Report 17409991 (Version 1)
Quarter: 2020Q1

REPORT INFORMATION
  Report Type: Spontaneous
  Country: FR (occurrence: FR)
  Receive Date: 20200212
  Receipt Date: 20200212
  Transmission Date: 20200409
  Serious: Yes (Life-Threatening)
  Sender: FDA-Public Use
  Company Number: FR-PFIZER INC-2020059718

PATIENT
  Age: 64 Year
  Sex: Male

DRUGS (7)
  1. CELOCURINE [SUXAMETHONIUM IODIDE] [Suspect]
     Active Substance: SUCCINYLCHOLINE IODIDE
     Indication: ENDOTRACHEAL INTUBATION
     Dosage: UNK
     Route: 042
     Dates: start: 20200113, end: 20200113
  2. ATRACURIUM BESILATE [Suspect]
     Active Substance: ATRACURIUM BESYLATE
     Indication: ANAESTHESIA
     Dosage: UNK
     Route: 042
     Dates: start: 20200113, end: 20200113
  3. CEFAZOLINE MYLAN [Suspect]
     Active Substance: CEFAZOLIN SODIUM
     Indication: ANTIBIOTIC PROPHYLAXIS
     Dosage: UNK
     Route: 065
     Dates: start: 20200113, end: 20200113
  4. PROPOFOL. [Suspect]
     Active Substance: PROPOFOL
     Indication: ANAESTHESIA
     Dosage: UNK
     Route: 065
     Dates: start: 20200113, end: 20200113
  5. SUFENTANIL [Suspect]
     Active Substance: SUFENTANIL
     Indication: ANAESTHESIA
     Dosage: UNK
     Route: 065
     Dates: start: 20200113, end: 20200113
  6. CHIROCAINE [Suspect]
     Active Substance: LEVOBUPIVACAINE HYDROCHLORIDE
     Indication: ANAESTHESIA
     Dosage: UNK
     Route: 041
     Dates: start: 20200113, end: 20200113
  7. KETAMINE [Suspect]
     Active Substance: KETAMINE
     Indication: ANAESTHESIA
     Dosage: UNK
     Route: 065
     Dates: start: 20200113, end: 20200113

REACTIONS (1)
  - Anaphylactic shock [Recovered/Resolved]

NARRATIVE: CASE EVENT DATE: 20200113
